FAERS Safety Report 22202064 (Version 3)
Quarter: 2023Q2

REPORT INFORMATION
  Report Type: Spontaneous
  Country: ES (occurrence: ES)
  Receive Date: 20230412
  Receipt Date: 20230420
  Transmission Date: 20230721
  Serious: Yes (Hospitalization, Other)
  Sender: FDA-Public Use
  Company Number: None

PATIENT
  Age: 45 Year
  Sex: Male

DRUGS (11)
  1. METHYLPREDNISOLONE SODIUM SUCCINATE [Suspect]
     Active Substance: METHYLPREDNISOLONE SODIUM SUCCINATE
     Indication: Pancytopenia
     Dosage: 1 MG/KG, DAILY
     Dates: start: 201002
  2. METHYLPREDNISOLONE SODIUM SUCCINATE [Suspect]
     Active Substance: METHYLPREDNISOLONE SODIUM SUCCINATE
     Indication: Hypotension
  3. METHYLPREDNISOLONE SODIUM SUCCINATE [Suspect]
     Active Substance: METHYLPREDNISOLONE SODIUM SUCCINATE
     Indication: Respiratory failure
  4. VIRAMUNE [Suspect]
     Active Substance: NEVIRAPINE
     Indication: HIV infection CDC category A
     Dosage: UNK UNK, 1X/DAY
     Dates: start: 200911
  5. TRUVADA [Suspect]
     Active Substance: EMTRICITABINE\TENOFOVIR DISOPROXIL FUMARATE
     Indication: HIV infection CDC category A
     Dosage: UNK UNK, 1X/DAY
     Dates: start: 200911
  6. SULFAMETHOXAZOLE\TRIMETHOPRIM [Concomitant]
     Active Substance: SULFAMETHOXAZOLE\TRIMETHOPRIM
     Indication: Pancytopenia
     Dosage: UNK
  7. SULFAMETHOXAZOLE\TRIMETHOPRIM [Concomitant]
     Active Substance: SULFAMETHOXAZOLE\TRIMETHOPRIM
     Indication: Hypotension
  8. SULFAMETHOXAZOLE\TRIMETHOPRIM [Concomitant]
     Active Substance: SULFAMETHOXAZOLE\TRIMETHOPRIM
     Indication: Respiratory failure
  9. IMIPENEM [Concomitant]
     Active Substance: IMIPENEM
     Indication: Pancytopenia
     Dosage: UNK
  10. IMIPENEM [Concomitant]
     Active Substance: IMIPENEM
     Indication: Hypotension
  11. IMIPENEM [Concomitant]
     Active Substance: IMIPENEM
     Indication: Respiratory failure

REACTIONS (2)
  - Kaposi^s sarcoma [Unknown]
  - Off label use [Unknown]

NARRATIVE: CASE EVENT DATE: 20100101
